FAERS Safety Report 15710973 (Version 1)
Quarter: 2018Q4

REPORT INFORMATION
  Report Type: Spontaneous
  Country: US (occurrence: US)
  Receive Date: 20181211
  Receipt Date: 20181211
  Transmission Date: 20190205
  Serious: No
  Sender: FDA-Public Use
  Company Number: US-PERNIX THERAPEUTICS-US-2018PER001673

PATIENT
  Age: 79 Year
  Sex: Male

DRUGS (2)
  1. HYDROCODONE BITARTRATE. [Suspect]
     Active Substance: HYDROCODONE BITARTRATE
     Indication: PAIN
     Dosage: 5/325 MG
     Dates: start: 20180403
  2. PREDNISONE. [Concomitant]
     Active Substance: PREDNISONE
     Indication: BURSITIS
     Dosage: 10 MG, TAPER DOSE
     Dates: start: 20180403

REACTIONS (2)
  - Night sweats [Unknown]
  - Dizziness [Unknown]

NARRATIVE: CASE EVENT DATE: 20180403
